FAERS Safety Report 17844770 (Version 1)
Quarter: 2020Q2

REPORT INFORMATION
  Report Type: Spontaneous
  Country: IE (occurrence: IE)
  Receive Date: 20200601
  Receipt Date: 20200601
  Transmission Date: 20200714
  Serious: Yes (Life-Threatening, Other)
  Sender: FDA-Public Use
  Company Number: IE-JNJFOC-20200528607

PATIENT
  Age: 72 Year
  Sex: Female
  Weight: 37 kg

DRUGS (20)
  1. PARACETAMOL [Suspect]
     Active Substance: ACETAMINOPHEN
     Route: 042
     Dates: start: 20200418, end: 20200418
  2. ADVAGRAF [Concomitant]
     Active Substance: TACROLIMUS
     Indication: LIVER TRANSPLANT
     Route: 065
     Dates: end: 20200419
  3. PARACETAMOL [Suspect]
     Active Substance: ACETAMINOPHEN
     Route: 048
     Dates: start: 20200418, end: 20200418
  4. PANTOPRAZOLE [Concomitant]
     Active Substance: PANTOPRAZOLE
     Indication: PRODUCT USED FOR UNKNOWN INDICATION
     Route: 065
     Dates: end: 20200419
  5. PARACETAMOL [Suspect]
     Active Substance: ACETAMINOPHEN
     Indication: PAIN
     Route: 048
     Dates: start: 20200419, end: 20200419
  6. IPRATROPIUM [Concomitant]
     Active Substance: IPRATROPIUM
     Indication: PRODUCT USED FOR UNKNOWN INDICATION
     Dosage: 1 PUFF DAILY
     Route: 055
     Dates: end: 20200419
  7. CREON [Concomitant]
     Active Substance: PANCRELIPASE AMYLASE\PANCRELIPASE LIPASE\PANCRELIPASE PROTEASE
     Indication: PRODUCT USED FOR UNKNOWN INDICATION
     Dosage: PANCREAS POWDER: 300MG;
     Route: 065
     Dates: end: 20200419
  8. CALCICHEW [Concomitant]
     Active Substance: CALCIUM CARBONATE
     Indication: PRODUCT USED FOR UNKNOWN INDICATION
     Route: 065
  9. PALEXIA [Concomitant]
     Active Substance: TAPENTADOL HYDROCHLORIDE
     Dosage: 100MG AND 50MG TWICE A DAY TAPENTADOL HYDROCHLORIDE: 50MG
     Route: 048
     Dates: end: 20200419
  10. PARACETAMOL [Suspect]
     Active Substance: ACETAMINOPHEN
     Dosage: 1G QDS PRESCRIBED VIA PO/IV ROUTE. 11 DOSES ADMINISTERED OVER 4 DAYS. AS PER PATIENT NOTES AND
     Route: 042
     Dates: start: 20200416, end: 20200416
  11. ONDANSETRON [Concomitant]
     Active Substance: ONDANSETRON
     Indication: PRODUCT USED FOR UNKNOWN INDICATION
     Dosage: 4MG ONE IV DOSE ADMINISTERED
     Route: 042
     Dates: start: 20200419, end: 20200419
  12. MACROLIEF [Concomitant]
     Indication: CONSTIPATION
     Dosage: ONE SACHET TWICE A DAY MACROGOL 3350: 13.125G; POTASSIUM?CHLORIDE: 0.0466G; SODIUM CHLORIDE: 0.3507G
     Route: 065
     Dates: start: 20200417, end: 20200419
  13. PALEXIA [Concomitant]
     Active Substance: TAPENTADOL HYDROCHLORIDE
     Indication: PAIN
     Dosage: TAPENTADOL HYDROCHLORIDE: 50MG
     Route: 065
     Dates: start: 20200416, end: 20200419
  14. SENNA                              /00142201/ [Concomitant]
     Active Substance: SENNA LEAF
     Indication: CONSTIPATION
     Dosage: 1 AT NIGHT
     Route: 048
     Dates: start: 20200417, end: 20200419
  15. PARACETAMOL [Suspect]
     Active Substance: ACETAMINOPHEN
     Dosage: 1 G QDS PRESCRIBED VIA PO/IV ROUTE. 11 DOSES ADMINISTERED OVER 4 DAYS. AS PER PATIENT NOTES AND
     Route: 048
     Dates: start: 20200417, end: 20200417
  16. PARACETAMOL [Suspect]
     Active Substance: ACETAMINOPHEN
     Indication: PAIN
     Dosage: 10MG/ML
     Route: 042
     Dates: start: 20200419, end: 20200419
  17. LERCANIDIPINE [Suspect]
     Active Substance: LERCANIDIPINE
     Indication: PRODUCT USED FOR UNKNOWN INDICATION
     Route: 048
     Dates: start: 20200417
  18. RELVAR ELLIPTA [Concomitant]
     Active Substance: FLUTICASONE FUROATE\VILANTEROL TRIFENATATE
     Indication: PRODUCT USED FOR UNKNOWN INDICATION
     Dosage: 92/22 MCG / 1 PUFF DAILY FLUTICASONE FUROATE (MICRONISED): 100UG;?VILANTEROL TRIFENATATE MICRONISED:
     Route: 055
  19. HARTMANN^S SOLUTION [Concomitant]
     Active Substance: CALCIUM CHLORIDE\POTASSIUM CHLORIDE\SODIUM CHLORIDE\SODIUM LACTATE
     Indication: PRODUCT USED FOR UNKNOWN INDICATION
     Dosage: 1 L ADMINISTERED OVER 12 HOURS
     Route: 065
     Dates: start: 20200418, end: 20200418
  20. CLEXANE [Concomitant]
     Active Substance: ENOXAPARIN SODIUM
     Indication: PRODUCT USED FOR UNKNOWN INDICATION
     Dosage: ENOXAPARIN SODIUM: 20MG
     Route: 065
     Dates: start: 20200417, end: 20200419

REACTIONS (2)
  - Liver function test increased [Recovered/Resolved]
  - International normalised ratio increased [Recovered/Resolved]

NARRATIVE: CASE EVENT DATE: 20200419
